FAERS Safety Report 17740950 (Version 4)
Quarter: 2021Q1

REPORT INFORMATION
  Report Type: Spontaneous
  Country: US (occurrence: US)
  Receive Date: 20200504
  Receipt Date: 20210303
  Transmission Date: 20210419
  Serious: Yes (Other)
  Sender: FDA-Public Use
  Company Number: US-PFIZER INC-2020177291

PATIENT
  Age: 68 Year
  Sex: Female

DRUGS (4)
  1. ALEVE [Concomitant]
     Active Substance: NAPROXEN SODIUM
     Indication: MUSCULOSKELETAL STIFFNESS
     Dosage: UNK, AS NEEDED (TAKING THIS AS NEEDED FOR STIFFNESS IN THE MORNING)
  2. XELJANZ [Suspect]
     Active Substance: TOFACITINIB CITRATE
     Indication: RHEUMATOID ARTHRITIS
     Dosage: 5 MG, 2X/DAY
     Route: 048
     Dates: start: 201911
  3. ASPIRIN [ACETYLSALICYLIC ACID] [Concomitant]
     Active Substance: ASPIRIN
     Dosage: UNK
  4. METHOTREXATE. [Concomitant]
     Active Substance: METHOTREXATE
     Dosage: UNK

REACTIONS (11)
  - Weight increased [Unknown]
  - Lower limb fracture [Recovering/Resolving]
  - Depression [Unknown]
  - Cataract [Unknown]
  - Product dose omission issue [Unknown]
  - Fall [Unknown]
  - Frustration tolerance decreased [Unknown]
  - Increased tendency to bruise [Unknown]
  - Memory impairment [Unknown]
  - Pain [Unknown]
  - Medical device site bruise [Unknown]

NARRATIVE: CASE EVENT DATE: 202004
